FAERS Safety Report 9376395 (Version 2)
Quarter: 2013Q3

REPORT INFORMATION
  Report Type: Spontaneous
  Country: US (occurrence: US)
  Receive Date: 20130701
  Receipt Date: 20130903
  Transmission Date: 20140515
  Serious: No
  Sender: FDA-Public Use
  Company Number: US-JNJFOC-20130607090

PATIENT
  Age: 42 Year
  Sex: Male
  Weight: 68.49 kg

DRUGS (2)
  1. INVEGA SUSTENNA [Suspect]
     Indication: SCHIZOPHRENIA
     Dosage: MONTHLY
     Route: 030
     Dates: start: 201303
  2. TRAZODONE [Concomitant]
     Indication: SCHIZOPHRENIA

REACTIONS (3)
  - Wrong technique in drug usage process [Unknown]
  - Pain in extremity [Recovered/Resolved with Sequelae]
  - Muscle tightness [Recovered/Resolved]
